FAERS Safety Report 8886800 (Version 2)
Quarter: 2012Q4

REPORT INFORMATION
  Report Type: Report from Study
  Country: HU (occurrence: HU)
  Receive Date: 20121105
  Receipt Date: 20121115
  Transmission Date: 20130627
  Serious: Yes (Hospitalization, Other)
  Sender: FDA-Public Use
  Company Number: HU-B.I. PHARMACEUTICALS,INC./RIDGEFIELD-2012-AP-00944AP

PATIENT
  Age: 62 Year
  Sex: Female
  Weight: 64 kg

DRUGS (3)
  1. SPIRIVA [Suspect]
     Indication: CHRONIC OBSTRUCTIVE PULMONARY DISEASE
     Dosage: 5 mcg
     Route: 055
     Dates: start: 20101029
  2. EDNYT [Concomitant]
     Indication: HYPERTENSION
     Dosage: 5 mg
     Route: 048
  3. BETALOC [Concomitant]
     Indication: HYPERTENSION
     Dosage: 50 mg
     Route: 048

REACTIONS (3)
  - Lung adenocarcinoma [Recovered/Resolved]
  - Bladder cancer [Recovered/Resolved]
  - Lung disorder [Not Recovered/Not Resolved]
